FAERS Safety Report 4572879-4 (Version None)
Quarter: 2005Q1

REPORT INFORMATION
  Report Type: 
  Country: None (occurrence: None)
  Receive Date: 20050203
  Receipt Date: 20050125
  Transmission Date: 20050727
  Serious: Yes (Hospitalization, Disabling)
  Sender: FDA-Public Use
  Company Number: 2005GB00049

PATIENT
  Age: 84 Year
  Sex: Male
  Weight: 78.9259 kg

DRUGS (5)
  1. ZOLADEX [Suspect]
     Indication: PROSTATE CANCER
     Dosage: 10.8 MG SQ
     Route: 058
     Dates: start: 19970101
  2. ASPIRIN [Concomitant]
  3. FRUSEMIDE [Concomitant]
  4. PERINDOPRIL [Concomitant]
  5. DIGOXIN [Concomitant]

REACTIONS (2)
  - DELUSIONAL DISORDER, UNSPECIFIED TYPE [None]
  - SCHIZOPHRENIA [None]
